FAERS Safety Report 19720641 (Version 2)
Quarter: 2021Q3

REPORT INFORMATION
  Report Type: Spontaneous
  Country: CN (occurrence: CN)
  Receive Date: 20210819
  Receipt Date: 20210901
  Transmission Date: 20211014
  Serious: Yes (Other)
  Sender: FDA-Public Use
  Company Number: CN-SA-2021SA248786

PATIENT
  Age: 60 Year
  Sex: Male
  Weight: 70 kg

DRUGS (2)
  1. AMARYL [Concomitant]
     Active Substance: GLIMEPIRIDE
     Dosage: UNK
     Route: 065
  2. APIDRA SOLOSTAR [Suspect]
     Active Substance: INSULIN GLULISINE
     Indication: DIABETES MELLITUS
     Dosage: UNK
     Route: 065

REACTIONS (10)
  - Diabetes mellitus inadequate control [Unknown]
  - Blood pressure increased [Unknown]
  - Decreased appetite [Unknown]
  - Injection site erythema [Recovering/Resolving]
  - Intentional dose omission [Unknown]
  - Injection site pain [Recovering/Resolving]
  - Blood glucose increased [Unknown]
  - Dizziness [Unknown]
  - Injection site swelling [Recovering/Resolving]
  - Cerebral infarction [Unknown]

NARRATIVE: CASE EVENT DATE: 2019
